FAERS Safety Report 19395876 (Version 2)
Quarter: 2021Q4

REPORT INFORMATION
  Report Type: Spontaneous
  Country: US (occurrence: None)
  Receive Date: 20210609
  Receipt Date: 20211224
  Transmission Date: 20220303
  Serious: Yes (Hospitalization)
  Sender: FDA-Public Use
  Company Number: US-ROCHE-2846075

PATIENT
  Sex: Male

DRUGS (1)
  1. XELODA [Suspect]
     Active Substance: CAPECITABINE
     Indication: Lung neoplasm malignant
     Dosage: ONCE DAILY
     Route: 048
     Dates: start: 20200309, end: 202103

REACTIONS (1)
  - Supraventricular tachycardia [Unknown]
